FAERS Safety Report 10900948 (Version 1)
Quarter: 2015Q1

REPORT INFORMATION
  Report Type: Spontaneous
  Country: US (occurrence: US)
  Receive Date: 20150310
  Receipt Date: 20150310
  Transmission Date: 20150721
  Serious: No
  Sender: FDA-Public Use
  Company Number: US-009507513-1503USA002155

PATIENT
  Sex: Female

DRUGS (1)
  1. JANUVIA [Suspect]
     Active Substance: SITAGLIPTIN PHOSPHATE
     Dosage: 100 MG/ ONCE A DAY
     Route: 048
     Dates: start: 201412

REACTIONS (3)
  - Medication residue present [Unknown]
  - No adverse event [Unknown]
  - Product quality issue [Unknown]
